FAERS Safety Report 7732030-6 (Version None)
Quarter: 2011Q3

REPORT INFORMATION
  Report Type: 
  Country: None (occurrence: None)
  Receive Date: 20110906
  Receipt Date: 20110728
  Transmission Date: 20111222
  Serious: No
  Sender: FDA-Public Use
  Company Number: US-AMGEN-USASP2011038524

PATIENT
  Sex: Female

DRUGS (15)
  1. PROLIA [Suspect]
     Indication: OSTEOPOROSIS POSTMENOPAUSAL
     Dosage: 60 MG, Q6MO
     Dates: start: 20110725
  2. CLONAZEPAM [Concomitant]
     Dosage: 1 MG, BID
  3. FISH OIL [Concomitant]
     Dosage: UNK
  4. OMEPRAZOLE [Concomitant]
     Dosage: 1 MG, BID
  5. GABAPENTIN [Concomitant]
     Dosage: 1 MG, BID
  6. ACETAMINOPHEN AND HYDROCODONE BITARTRATE [Concomitant]
     Dosage: UNK
  7. LIPITOR [Concomitant]
     Dosage: UNK
  8. MULTI-VITAMINS [Concomitant]
     Dosage: UNK
  9. IBUPROFEN [Concomitant]
     Dosage: UNK
  10. FEXOFENADINE HCL [Concomitant]
     Dosage: UNK
  11. ZOLPIDEM TARTRATE [Concomitant]
     Dosage: UNK
  12. CYCLOBENZAPRINE [Concomitant]
     Dosage: UNK MG, UNK
  13. VALACYCLOVIR HYDROCHLORIDE [Concomitant]
     Dosage: 1 MG, QD
  14. DIPHAMINE [Concomitant]
  15. CALCIUM + VITAMIN D [Concomitant]
     Dosage: UNK

REACTIONS (2)
  - PAIN IN EXTREMITY [None]
  - FOOT FRACTURE [None]
